FAERS Safety Report 17218684 (Version 1)
Quarter: 2019Q4

REPORT INFORMATION
  Report Type: Spontaneous
  Country: SE (occurrence: SE)
  Receive Date: 20191231
  Receipt Date: 20191231
  Transmission Date: 20200122
  Serious: Yes (Hospitalization)
  Sender: FDA-Public Use
  Company Number: SE-TEVA-2019-SE-1159669

PATIENT
  Age: 59 Year
  Sex: Female

DRUGS (4)
  1. MELATONIN [Suspect]
     Active Substance: MELATONIN
     Dosage: ANTAL MELATONIN 1 MG
     Route: 048
     Dates: start: 20190317, end: 20190317
  2. OXASCAND 5 MG TABLETT [Suspect]
     Active Substance: OXAZEPAM
     Dosage: 30 MG
     Route: 048
     Dates: start: 20190317, end: 20190317
  3. ZOPICLONE [Suspect]
     Active Substance: ZOPICLONE
     Dosage: 150 MG
     Route: 048
     Dates: start: 20190317, end: 20190317
  4. PROPAVAN [Suspect]
     Active Substance: PROPIOMAZINE
     Dosage: 40 TABLETTER
     Route: 048
     Dates: start: 20190317, end: 20190317

REACTIONS (3)
  - Intentional self-injury [Unknown]
  - Intentional overdose [Unknown]
  - Depressed level of consciousness [Unknown]

NARRATIVE: CASE EVENT DATE: 20190317
